FAERS Safety Report 10273932 (Version 1)
Quarter: 2014Q3

REPORT INFORMATION
  Report Type: Spontaneous
  Country: DE (occurrence: DE)
  Receive Date: 20140702
  Receipt Date: 20140702
  Transmission Date: 20150326
  Serious: Yes (Other)
  Sender: FDA-Public Use
  Company Number: GXKR2014DE002451

PATIENT
  Age: 78 Year
  Sex: Female

DRUGS (1)
  1. METOHEXAL [Suspect]
     Active Substance: METOPROLOL SUCCINATE
     Route: 048

REACTIONS (2)
  - Muscle spasms [Unknown]
  - Polyneuropathy [Unknown]
